FAERS Safety Report 8077816-6 (Version None)
Quarter: 2012Q1

REPORT INFORMATION
  Report Type: 
  Country: None (occurrence: None)
  Receive Date: 20120127
  Receipt Date: 20120124
  Transmission Date: 20120608
  Serious: No
  Sender: FDA-Public Use
  Company Number: US-PFIZER INC-2012004921

PATIENT
  Sex: Female
  Weight: 74.83 kg

DRUGS (8)
  1. NEO-MEDROL [Concomitant]
     Dosage: UNK
  2. CLARINEX [Concomitant]
     Dosage: UNK
  3. MULTI-VITAMINS [Concomitant]
     Dosage: UNK
  4. MAXALT [Concomitant]
     Dosage: 10 MG, AS NEEDED
  5. NABUMETONE [Concomitant]
     Dosage: 500 MG, 2X/DAY
  6. NEURONTIN [Concomitant]
     Dosage: 300 MG, 2X/DAY
  7. PROTONIX [Concomitant]
     Dosage: 40 MG, 1X/DAY
  8. EFFEXOR XR [Suspect]
     Indication: DEPRESSION
     Dosage: 75 MG, 1X/DAY
     Route: 048
     Dates: start: 20100201, end: 20111201

REACTIONS (2)
  - PAIN [None]
  - THINKING ABNORMAL [None]
